FAERS Safety Report 14633693 (Version 1)
Quarter: 2018Q1

REPORT INFORMATION
  Report Type: Spontaneous
  Country: US (occurrence: US)
  Receive Date: 20180314
  Receipt Date: 20180314
  Transmission Date: 20180509
  Serious: Yes (Hospitalization, Other)
  Sender: FDA-Public Use
  Company Number: US-ASTRAZENECA-2018SE29607

PATIENT
  Age: 61 Year
  Sex: Female
  Weight: 87.1 kg

DRUGS (11)
  1. SERTRALINE [Concomitant]
     Active Substance: SERTRALINE HYDROCHLORIDE
     Indication: DEPRESSION
     Route: 048
     Dates: start: 2017
  2. HUMALOG [Concomitant]
     Active Substance: INSULIN LISPRO
     Indication: DIABETES MELLITUS
     Dosage: WITH AN UNSPECIFIED BASAL DOSE AND AS NEEDED DOSE
     Route: 058
  3. METOPROLOL SUCCINATE. [Suspect]
     Active Substance: METOPROLOL SUCCINATE
     Indication: CARDIAC DISORDER
     Route: 048
  4. BRILINTA [Suspect]
     Active Substance: TICAGRELOR
     Indication: STENT PLACEMENT
     Route: 048
  5. BRILINTA [Suspect]
     Active Substance: TICAGRELOR
     Indication: VASCULAR GRAFT
     Route: 048
  6. LISINOPRIL. [Suspect]
     Active Substance: LISINOPRIL
     Indication: CARDIAC DISORDER
     Route: 048
     Dates: start: 201610
  7. BABY ASPIRIN [Concomitant]
     Active Substance: ASPIRIN
     Indication: CARDIAC DISORDER
     Route: 048
     Dates: start: 1996
  8. CRESTOR [Suspect]
     Active Substance: ROSUVASTATIN CALCIUM
     Indication: BLOOD CHOLESTEROL ABNORMAL
     Route: 048
     Dates: start: 2008
  9. BUPROPION. [Concomitant]
     Active Substance: BUPROPION
     Indication: DEPRESSION
     Route: 048
     Dates: start: 2014
  10. ISORSORBIDE IMDUR [Concomitant]
     Indication: CARDIAC DISORDER
  11. GABAPENTIN. [Concomitant]
     Active Substance: GABAPENTIN
     Indication: NEUROPATHY PERIPHERAL
     Dosage: 300 MG BY MOUTH IN THE A.M., 600 MG BY MOUTH AT DINNER AND 900 MG BY MOUTH AT BEDTIME
     Route: 048

REACTIONS (10)
  - Cough [Recovering/Resolving]
  - Loss of personal independence in daily activities [Recovered/Resolved]
  - Acute kidney injury [Not Recovered/Not Resolved]
  - Loss of consciousness [Recovered/Resolved]
  - Chronic kidney disease [Not Recovered/Not Resolved]
  - Respiratory disorder [Recovering/Resolving]
  - Incoherent [Recovered/Resolved]
  - Blindness transient [Recovered/Resolved]
  - Dehydration [Not Recovered/Not Resolved]
  - Malaise [Unknown]

NARRATIVE: CASE EVENT DATE: 2014
